FAERS Safety Report 5703582-2 (Version None)
Quarter: 2008Q2

REPORT INFORMATION
  Report Type: 
  Country: None (occurrence: None)
  Receive Date: 20080409
  Receipt Date: 20080324
  Transmission Date: 20081010
  Serious: Yes (Hospitalization)
  Sender: FDA-Public Use
  Company Number: PAR_02148_2008

PATIENT
  Sex: Male
  Weight: 95.2554 kg

DRUGS (4)
  1. DEXAMETHASONE TAB [Suspect]
     Indication: RETRO-ORBITAL NEOPLASM
     Dosage: 4 MG TID ORAL (4 MG 3 X /2 DAYS ORAL)
     Route: 048
     Dates: start: 20071201, end: 20080101
  2. ATENOLOL [Suspect]
     Indication: DRUG USE FOR UNKNOWN INDICATION
     Dosage: DF
  3. PREVACID [Concomitant]
  4. NORVASC [Concomitant]

REACTIONS (7)
  - ARTHRALGIA [None]
  - ASTHENIA [None]
  - BONE PAIN [None]
  - DRUG INTERACTION [None]
  - GASTROINTESTINAL HAEMORRHAGE [None]
  - MELAENA [None]
  - MYALGIA [None]
